FAERS Safety Report 4491338-0 (Version None)
Quarter: 2004Q4

REPORT INFORMATION
  Report Type: 
  Country: None (occurrence: None)
  Receive Date: 20041029
  Receipt Date: 20041026
  Transmission Date: 20050328
  Serious: Yes (Death, Other)
  Sender: FDA-Public Use
  Company Number: KII-2003-0003534

PATIENT
  Sex: Male

DRUGS (2)
  1. OXYCONTIN [Suspect]
  2. ALCOHOL(ETHANOL) [Suspect]

REACTIONS (2)
  - ALCOHOL USE [None]
  - DRUG DEPENDENCE [None]
